FAERS Safety Report 17759882 (Version 1)
Quarter: 2020Q2

REPORT INFORMATION
  Report Type: Spontaneous
  Country: US (occurrence: US)
  Receive Date: 20200508
  Receipt Date: 20200508
  Transmission Date: 20200714
  Serious: Yes (Other)
  Sender: FDA-Public Use
  Company Number: US-SA-2020SA118151

PATIENT
  Age: 49 Year
  Sex: Male

DRUGS (1)
  1. CAPRELSA [Suspect]
     Active Substance: VANDETANIB
     Indication: THYROID CANCER
     Dosage: 300 MG, QD
     Route: 048
     Dates: start: 20191223

REACTIONS (5)
  - Photosensitivity reaction [Unknown]
  - Oesophageal carcinoma [Unknown]
  - Carcinoembryonic antigen increased [Unknown]
  - Dry skin [Unknown]
  - Blood calcitonin increased [Unknown]
